FAERS Safety Report 24833112 (Version 1)
Quarter: 2025Q1

REPORT INFORMATION
  Report Type: Spontaneous
  Country: US (occurrence: US)
  Receive Date: 20250111
  Receipt Date: 20250111
  Transmission Date: 20250409
  Serious: No
  Sender: TEVA
  Company Number: US-TEVA-VS-3281959

PATIENT
  Age: 70 Year
  Sex: Female

DRUGS (2)
  1. DOXEPIN [Suspect]
     Active Substance: DOXEPIN
     Indication: Product used for unknown indication
     Route: 065
     Dates: start: 202410
  2. TYMLOS [Suspect]
     Active Substance: ABALOPARATIDE
     Indication: Senile osteoporosis
     Route: 058
     Dates: start: 202410

REACTIONS (2)
  - Chest discomfort [Recovered/Resolved]
  - Heart rate increased [Recovered/Resolved]

NARRATIVE: CASE EVENT DATE: 20240101
